FAERS Safety Report 6764725-5 (Version None)
Quarter: 2010Q2

REPORT INFORMATION
  Report Type: 
  Country: None (occurrence: None)
  Receive Date: 20100610
  Receipt Date: 20100602
  Transmission Date: 20101027
  Serious: Yes (Hospitalization, Other)
  Sender: FDA-Public Use
  Company Number: US-AMGEN-QUU413579

PATIENT
  Sex: Male
  Weight: 74.9 kg

DRUGS (2)
  1. ARANESP [Suspect]
     Indication: RENAL FAILURE CHRONIC
  2. PROCRIT [Suspect]
     Indication: DIALYSIS

REACTIONS (10)
  - BONE MARROW RETICULIN FIBROSIS [None]
  - CHEST PAIN [None]
  - COMPLICATIONS OF TRANSPLANTED KIDNEY [None]
  - EOSINOPHIL MORPHOLOGY ABNORMAL [None]
  - HAEMATEMESIS [None]
  - IRON OVERLOAD [None]
  - MICROCYTIC ANAEMIA [None]
  - MYELODYSPLASTIC SYNDROME [None]
  - RETICULOCYTE COUNT ABNORMAL [None]
  - THERAPEUTIC RESPONSE DECREASED [None]
